FAERS Safety Report 5279970-8 (Version None)
Quarter: 2007Q1

REPORT INFORMATION
  Report Type: 
  Country: None (occurrence: None)
  Receive Date: 20070327
  Receipt Date: 20070327
  Transmission Date: 20070707
  Serious: Yes (Hospitalization)
  Sender: FDA-Public Use
  Company Number: None

PATIENT
  Age: 45 Year
  Sex: Female
  Weight: 94 kg

DRUGS (13)
  1. VANCOMYCIN [Suspect]
     Indication: LOCALISED INFECTION
     Dosage: 1 GRAM DAILY IV
     Route: 042
     Dates: start: 20070201, end: 20070222
  2. VANCOMYCIN [Suspect]
     Indication: WOUND
     Dosage: 1 GRAM DAILY IV
     Route: 042
     Dates: start: 20070201, end: 20070222
  3. ULTRAM [Concomitant]
  4. SINEMET [Concomitant]
  5. ADVAIR DISKUS 100/50 [Concomitant]
  6. VICODIN [Concomitant]
  7. ALBUTEROL [Concomitant]
  8. SINGULAIR [Concomitant]
  9. LANTUS [Concomitant]
  10. HUMALOG [Concomitant]
  11. HYZAAR [Concomitant]
  12. COMBIVENT [Concomitant]
  13. MORPHINE [Concomitant]

REACTIONS (9)
  - ANOREXIA [None]
  - CHILLS [None]
  - HYPERHIDROSIS [None]
  - IDIOSYNCRATIC DRUG REACTION [None]
  - MALAISE [None]
  - NAUSEA [None]
  - ORAL INTAKE REDUCED [None]
  - RASH [None]
  - WHEEZING [None]
